FAERS Safety Report 9664361 (Version 3)
Quarter: 2013Q4

REPORT INFORMATION
  Report Type: Report from Study
  Country: BE (occurrence: BE)
  Receive Date: 20131101
  Receipt Date: 20131115
  Transmission Date: 20140711
  Serious: Yes (Hospitalization)
  Sender: FDA-Public Use
  Company Number: BE-ABBVIE-12P-013-1021729-00

PATIENT
  Age: 30 Year
  Sex: Male
  Weight: 73 kg

DRUGS (6)
  1. HUMIRA [Suspect]
     Indication: CROHN^S DISEASE
     Route: 058
     Dates: start: 20120215
  2. PREDNISONE [Suspect]
     Indication: CROHN^S DISEASE
     Dosage: DOSE TAPER FROM 40 MG
     Route: 048
     Dates: start: 20111215, end: 20121121
  3. SPASMOMEN [Concomitant]
     Indication: ABDOMINAL PAIN
     Dates: start: 201111
  4. ZYRTEC [Concomitant]
     Indication: SEASONAL ALLERGY
     Dates: start: 20120319
  5. ALLERGODYL [Concomitant]
     Indication: SEASONAL ALLERGY
     Dosage: 1 DROP EACH EYE
     Dates: start: 20120319
  6. BUSCOPAN [Concomitant]
     Indication: ABDOMINAL PAIN
     Dates: start: 20121001

REACTIONS (1)
  - Anal fistula [Recovered/Resolved]
